FAERS Safety Report 14603580 (Version 1)
Quarter: 2018Q1

REPORT INFORMATION
  Report Type: Report from Study
  Country: US (occurrence: US)
  Receive Date: 20180306
  Receipt Date: 20180306
  Transmission Date: 20180509
  Serious: Yes (Hospitalization, Other)
  Sender: FDA-Public Use
  Company Number: US-JNJFOC-20180300026

PATIENT
  Sex: Female
  Weight: 58.06 kg

DRUGS (4)
  1. REMICADE [Suspect]
     Active Substance: INFLIXIMAB
     Indication: RHEUMATOID ARTHRITIS
     Dosage: EVERY 5??OR 6 WEEKS
     Route: 042
     Dates: end: 2017
  2. METHOTREXATE. [Suspect]
     Active Substance: METHOTREXATE
     Indication: RHEUMATOID ARTHRITIS
     Dosage: 5 OR 6 WEEKS
     Route: 065
  3. REMICADE [Suspect]
     Active Substance: INFLIXIMAB
     Indication: RHEUMATOID ARTHRITIS
     Dosage: EVERY 5??OR 6 WEEKS
     Route: 042
  4. LEFLUNOMIDE. [Suspect]
     Active Substance: LEFLUNOMIDE
     Indication: RHEUMATOID ARTHRITIS
     Route: 065
     Dates: start: 201801

REACTIONS (6)
  - Gastroenteritis salmonella [Unknown]
  - Cholelithiasis [Recovered/Resolved]
  - Pulmonary mass [Unknown]
  - Alopecia [Recovering/Resolving]
  - Lung abscess [Recovered/Resolved]
  - Gallbladder perforation [Unknown]

NARRATIVE: CASE EVENT DATE: 2017
